FAERS Safety Report 22158535 (Version 1)
Quarter: 2023Q1

REPORT INFORMATION
  Report Type: Spontaneous
  Country: US (occurrence: US)
  Receive Date: 20230331
  Receipt Date: 20230331
  Transmission Date: 20230417
  Serious: Yes (Hospitalization, Other)
  Sender: FDA-Public Use
  Company Number: US-PROCTER_AND_GAMBLE-PH23003008

PATIENT
  Age: 46 Year
  Sex: Female

DRUGS (5)
  1. CALCIUM CARBONATE [Suspect]
     Active Substance: CALCIUM CARBONATE
     Dosage: UNK
     Route: 048
  2. VITAMIN D NOS [Suspect]
     Active Substance: VITAMIN D NOS
     Dosage: UNK
     Route: 048
  3. SODIUM BICARBONATE- containing antacid [Concomitant]
     Dosage: 4 TABLET, 1 /DAY
  4. UNSPECIFIED INGREDIENT [Concomitant]
     Active Substance: UNSPECIFIED INGREDIENT
  5. antacWpain-reliever containing sodium bicarbonate, citric acid, and as [Concomitant]

REACTIONS (15)
  - Milk-alkali syndrome [Recovered/Resolved]
  - Purtscher retinopathy [Recovered/Resolved]
  - Retinal ischaemia [Recovered/Resolved]
  - Retinal haemorrhage [Recovering/Resolving]
  - Hypercalcaemia [Unknown]
  - Pancreatitis acute [Recovered/Resolved]
  - Metabolic alkalosis [Unknown]
  - Renal failure [Unknown]
  - Visual impairment [Recovering/Resolving]
  - Joint injury [Unknown]
  - Abdominal discomfort [Unknown]
  - Nausea [Unknown]
  - Vomiting [Unknown]
  - Amylase increased [Unknown]
  - Lipase increased [Unknown]

NARRATIVE: CASE EVENT DATE: 20230301
